FAERS Safety Report 6611927-4 (Version None)
Quarter: 2010Q1

REPORT INFORMATION
  Report Type: 
  Country: None (occurrence: None)
  Receive Date: 20100225
  Receipt Date: 20100212
  Transmission Date: 20100710
  Serious: Yes (Other)
  Sender: FDA-Public Use
  Company Number: OSCN-PR-0811S-0617

PATIENT
  Sex: Male

DRUGS (15)
  1. GADOLINIUM (UNSPECIFIED) [Suspect]
     Indication: DRUG USE FOR UNKNOWN INDICATION
     Dosage: SEE IMAGE
     Dates: start: 20011130, end: 20011130
  2. GADOLINIUM (UNSPECIFIED) [Suspect]
     Indication: DRUG USE FOR UNKNOWN INDICATION
     Dosage: SEE IMAGE
     Dates: start: 20020307, end: 20020307
  3. GADOLINIUM (UNSPECIFIED) [Suspect]
     Indication: DRUG USE FOR UNKNOWN INDICATION
     Dosage: SEE IMAGE
     Dates: start: 20020920, end: 20020920
  4. GADOLINIUM (UNSPECIFIED) [Suspect]
     Indication: DRUG USE FOR UNKNOWN INDICATION
     Dosage: SEE IMAGE
     Dates: start: 20030226, end: 20030226
  5. GADOLINIUM (UNSPECIFIED) [Suspect]
     Indication: DRUG USE FOR UNKNOWN INDICATION
     Dosage: SEE IMAGE
     Dates: start: 20030930, end: 20030930
  6. GADOLINIUM (UNSPECIFIED) [Suspect]
     Indication: DRUG USE FOR UNKNOWN INDICATION
     Dosage: SEE IMAGE
     Dates: start: 20040225, end: 20040225
  7. GADOLINIUM (UNSPECIFIED) [Suspect]
     Indication: DRUG USE FOR UNKNOWN INDICATION
     Dosage: SEE IMAGE
     Dates: start: 20040427, end: 20040427
  8. GADOLINIUM (UNSPECIFIED) [Suspect]
     Indication: DRUG USE FOR UNKNOWN INDICATION
     Dosage: SEE IMAGE
     Dates: start: 20040809, end: 20040809
  9. GADOLINIUM (UNSPECIFIED) [Suspect]
     Indication: DRUG USE FOR UNKNOWN INDICATION
     Dosage: SEE IMAGE
     Dates: start: 20050126, end: 20050126
  10. GADOLINIUM (UNSPECIFIED) [Suspect]
     Indication: DRUG USE FOR UNKNOWN INDICATION
     Dosage: SEE IMAGE
     Dates: start: 20050803, end: 20050803
  11. GADOLINIUM (UNSPECIFIED) [Suspect]
     Indication: DRUG USE FOR UNKNOWN INDICATION
     Dosage: SEE IMAGE
     Dates: start: 20060201, end: 20060201
  12. GADOLINIUM (UNSPECIFIED) [Suspect]
     Indication: DRUG USE FOR UNKNOWN INDICATION
     Dosage: SEE IMAGE
     Dates: start: 20060512, end: 20060512
  13. GADOLINIUM (UNSPECIFIED) [Suspect]
     Indication: DRUG USE FOR UNKNOWN INDICATION
     Dosage: SEE IMAGE
     Dates: start: 20061009, end: 20061009
  14. GADOPENTATE DIMEGLUMINE (MAGNEVIST) [Concomitant]
  15. OPTIMARK [Concomitant]

REACTIONS (1)
  - NEPHROGENIC SYSTEMIC FIBROSIS [None]
